FAERS Safety Report 22363537 (Version 1)
Quarter: 2023Q2

REPORT INFORMATION
  Report Type: Report from Study
  Country: BR (occurrence: BR)
  Receive Date: 20230525
  Receipt Date: 20230525
  Transmission Date: 20230721
  Serious: Yes (Other)
  Sender: FDA-Public Use
  Company Number: BR-CELLTRION INC.-2023BR010755

PATIENT

DRUGS (4)
  1. INFLIXIMAB [Suspect]
     Active Substance: INFLIXIMAB
     Indication: Psoriatic arthropathy
     Dosage: 4 AMPOULES EVERY 8 WEEKS
     Route: 042
     Dates: start: 20220916, end: 20220916
  2. METHOTREXATE [Concomitant]
     Active Substance: METHOTREXATE
     Indication: Arthritis
     Dosage: 1 CAPSULE PER WEEK
     Route: 048
  3. FOLIC ACID [Concomitant]
     Active Substance: FOLIC ACID
     Indication: Arthritis
     Dosage: 1 CAPSULE PER WEEK
     Route: 048
  4. LOSARTAN [Concomitant]
     Active Substance: LOSARTAN
     Indication: Hypertension
     Dosage: 1 CAPSULE PER DAY
     Route: 048

REACTIONS (3)
  - Pain [Recovered/Resolved]
  - Psoriasis [Recovered/Resolved]
  - Drug ineffective [Recovered/Resolved]
